FAERS Safety Report 8615733-0 (Version None)
Quarter: 2012Q3

REPORT INFORMATION
  Report Type: 
  Country: None (occurrence: None)
  Receive Date: 20120823
  Receipt Date: 20120815
  Transmission Date: 20120928
  Serious: Yes (Hospitalization)
  Sender: FDA-Public Use
  Company Number: US-JNJFOC-20120808731

PATIENT
  Sex: Female

DRUGS (3)
  1. TYLENOL [Suspect]
     Indication: PRODUCT USED FOR UNKNOWN INDICATION
     Route: 048
     Dates: start: 20100101
  2. INVEGA [Concomitant]
     Indication: MENTAL DISORDER
     Dosage: INVEGA SUSTENNA INJECTION
     Route: 030
  3. TYLENOL [Suspect]
     Route: 048

REACTIONS (3)
  - OCULAR ICTERUS [None]
  - OVERDOSE [None]
  - YELLOW SKIN [None]
